FAERS Safety Report 18578378 (Version 1)
Quarter: 2020Q4

REPORT INFORMATION
  Report Type: Spontaneous
  Country: US (occurrence: US)
  Receive Date: 20201202
  Receipt Date: 20201202
  Transmission Date: 20210114
  Serious: Yes (Hospitalization)
  Sender: FDA-Public Use
  Company Number: None

PATIENT
  Sex: Female

DRUGS (24)
  1. ENBREL [Suspect]
     Active Substance: ETANERCEPT
     Indication: RHEUMATOID ARTHRITIS
     Route: 058
     Dates: start: 20190827
  2. AZITHROMYCIN ANHYDROUS. [Concomitant]
     Active Substance: AZITHROMYCIN ANHYDROUS
  3. CEFDINIR. [Concomitant]
     Active Substance: CEFDINIR
  4. OMEGA-3 ACIDS [Concomitant]
     Active Substance: OMEGA-3 FATTY ACIDS
  5. PHENAZOPYRID [Concomitant]
  6. MULTIVITAMIN ADLT 50+ [Concomitant]
  7. PREDNISONE. [Concomitant]
     Active Substance: PREDNISONE
  8. TRAMADOL HCL [Concomitant]
     Active Substance: TRAMADOL HYDROCHLORIDE
  9. CALTRATE WITH VITAMIN D [Concomitant]
     Active Substance: CALCIUM CARBONATE\CHOLECALCIFEROL
  10. CLONAZEPAM. [Concomitant]
     Active Substance: CLONAZEPAM
  11. METHOCARBAM [Concomitant]
     Active Substance: METHOCARBAMOL
  12. TIZANIDINE. [Concomitant]
     Active Substance: TIZANIDINE
  13. VITAMIN C [Concomitant]
     Active Substance: ASCORBIC ACID
  14. VITAMIN D3 [Concomitant]
     Active Substance: CHOLECALCIFEROL
  15. DICLOFENAC GEL [Concomitant]
     Active Substance: DICLOFENAC
  16. LEFLUNOMIDE. [Concomitant]
     Active Substance: LEFLUNOMIDE
  17. NITROFURANTIN [Concomitant]
     Active Substance: NITROFURANTOIN
  18. FOLIC ACID. [Concomitant]
     Active Substance: FOLIC ACID
  19. PROBIOTIC [Concomitant]
     Active Substance: PROBIOTICS NOS
  20. CHOLESTYRAM [Concomitant]
     Active Substance: CHOLESTYRAMINE
  21. METOPROL SUC ER [Concomitant]
  22. MONTELUKAST [Concomitant]
     Active Substance: MONTELUKAST SODIUM
  23. PREGABALIN. [Concomitant]
     Active Substance: PREGABALIN
  24. ZINC. [Concomitant]
     Active Substance: ZINC

REACTIONS (2)
  - Pneumonia [None]
  - Condition aggravated [None]
